FAERS Safety Report 6691386 (Version 2)
Quarter: 2013Q2

REPORT INFORMATION
  Report Type: Spontaneous
  Country: US (occurrence: None)
  Receive Date: 20080311
  Receipt Date: 20120504
  Transmission Date: 20140414
  Serious: Yes (Hospitalization)
  Sender: FDA-Public Use
  Company Number: PHEH2008US00705

PATIENT
  Age: 60 Year
  Sex: Male

DRUGS (3)
  1. TRILEPTAL [Suspect]
     Indication: TRIGEMINAL NEURALGIA
     Route: 048
     Dates: start: 200411, end: 200709
  2. LAMICTAL [Concomitant]
  3. OXCARBAZEPINE [Concomitant]

REACTIONS (4)
  - TRIGEMINAL NEURALGIA [None]
  - CONDITION AGGRAVATED [None]
  - PAIN [None]
  - Dizziness [None]
